FAERS Safety Report 21212873 (Version 1)
Quarter: 2022Q3

REPORT INFORMATION
  Report Type: Spontaneous
  Country: US (occurrence: US)
  Receive Date: 20220815
  Receipt Date: 20220815
  Transmission Date: 20221026
  Serious: No
  Sender: FDA-Public Use
  Company Number: US-PFIZER INC-202201053711

PATIENT
  Age: 72 Year
  Sex: Female
  Weight: 64.41 kg

DRUGS (2)
  1. TOVIAZ [Suspect]
     Active Substance: FESOTERODINE FUMARATE
     Indication: Hypertonic bladder
     Dosage: 8 MG
  2. TOVIAZ [Suspect]
     Active Substance: FESOTERODINE FUMARATE
     Dosage: 2 DF, 1X/DAY (IN THE MORNING)

REACTIONS (2)
  - Accidental overdose [Unknown]
  - Dry mouth [Unknown]

NARRATIVE: CASE EVENT DATE: 20220811
